FAERS Safety Report 8374950-8 (Version None)
Quarter: 2012Q2

REPORT INFORMATION
  Report Type: 
  Country: None (occurrence: None)
  Receive Date: 20120521
  Receipt Date: 20120425
  Transmission Date: 20120825
  Serious: No
  Sender: FDA-Public Use
  Company Number: US-ROCHE-1053508

PATIENT
  Sex: Female

DRUGS (2)
  1. OMALIZUMAB [Suspect]
     Dosage: 300 MG, Q4W
  2. OMALIZUMAB [Suspect]
     Indication: ASTHMA
     Dosage: UNK UNK, UNKNOWN
     Route: 064
     Dates: start: 20090209, end: 20100607

REACTIONS (5)
  - UPPER RESPIRATORY TRACT INFECTION [None]
  - EAR INFECTION [None]
  - MATERNAL EXPOSURE TIMING UNSPECIFIED [None]
  - HAND-FOOT-AND-MOUTH DISEASE [None]
  - GASTROOESOPHAGEAL REFLUX DISEASE [None]
